FAERS Safety Report 18581907 (Version 3)
Quarter: 2021Q1

REPORT INFORMATION
  Report Type: Spontaneous
  Country: CN (occurrence: CN)
  Receive Date: 20201204
  Receipt Date: 20210111
  Transmission Date: 20210419
  Serious: Yes (Hospitalization, Other)
  Sender: FDA-Public Use
  Company Number: CN-ELI_LILLY_AND_COMPANY-CN202011011099

PATIENT
  Age: 66 Year
  Sex: Female
  Weight: 65 kg

DRUGS (5)
  1. HUMALOG MIX50/50 [Suspect]
     Active Substance: INSULIN LISPRO
     Dosage: 4 U, DAILY (NOON)
     Route: 058
     Dates: start: 202005
  2. HUMALOG MIX50/50 [Suspect]
     Active Substance: INSULIN LISPRO
     Dosage: UNK UNK, UNKNOWN
     Route: 058
  3. HUMALOG MIX50/50 [Suspect]
     Active Substance: INSULIN LISPRO
     Indication: TYPE 1 DIABETES MELLITUS
     Dosage: 6 U, EACH MORNING
     Route: 058
     Dates: start: 202005
  4. HUMALOG MIX50/50 [Suspect]
     Active Substance: INSULIN LISPRO
     Dosage: 4 U, DAILY (NIGHT)
     Route: 058
     Dates: start: 202005
  5. HUMALOG MIX50/50 [Suspect]
     Active Substance: INSULIN LISPRO
     Dosage: 2U, DAILY (NOON)
     Route: 058
     Dates: start: 2020

REACTIONS (13)
  - Discomfort [Unknown]
  - Dry throat [Unknown]
  - Hypoglycaemia [Unknown]
  - Thirst [Unknown]
  - Poor quality sleep [Unknown]
  - Amnesia [Unknown]
  - Cerebrovascular disorder [Unknown]
  - Spinal disorder [Unknown]
  - Abnormal dreams [Unknown]
  - Eye discharge [Unknown]
  - Visual impairment [Unknown]
  - Hypoaesthesia [Unknown]
  - Auditory disorder [Unknown]

NARRATIVE: CASE EVENT DATE: 202009
